FAERS Safety Report 23311743 (Version 4)
Quarter: 2024Q3

REPORT INFORMATION
  Report Type: Report from Study
  Country: US (occurrence: US)
  Receive Date: 20231219
  Receipt Date: 20240729
  Transmission Date: 20241017
  Serious: Yes (Hospitalization)
  Sender: SANOFI AVENTIS
  Company Number: US-SA-SAC20231215000212

PATIENT
  Age: 44 Year
  Sex: Female
  Weight: 79.5 kg

DRUGS (2)
  1. AVALGLUCOSIDASE ALFA-NGPT [Suspect]
     Active Substance: AVALGLUCOSIDASE ALFA-NGPT
     Indication: Glycogen storage disease type II
     Dosage: 1700 MG, QOW
     Route: 042
     Dates: start: 202310
  2. AVALGLUCOSIDASE ALFA-NGPT [Suspect]
     Active Substance: AVALGLUCOSIDASE ALFA-NGPT
     Dosage: (3200 MG) 40 MG/KG, QOW
     Route: 042

REACTIONS (8)
  - Respiratory disorder [Not Recovered/Not Resolved]
  - Condition aggravated [Not Recovered/Not Resolved]
  - General physical health deterioration [Unknown]
  - Lung transplant [Recovering/Resolving]
  - Weight decreased [Unknown]
  - Hypoglycaemia [Unknown]
  - Diaphragmatic disorder [Unknown]
  - Hypercapnia [Unknown]
